FAERS Safety Report 16855465 (Version 1)
Quarter: 2019Q3

REPORT INFORMATION
  Report Type: Report from Study
  Country: ES (occurrence: ES)
  Receive Date: 20190926
  Receipt Date: 20190926
  Transmission Date: 20191005
  Serious: Yes (Other)
  Sender: FDA-Public Use
  Company Number: ES-ACCORD-155696

PATIENT
  Age: 29 Year
  Sex: Female

DRUGS (6)
  1. FUROSEMIDE. [Suspect]
     Active Substance: FUROSEMIDE
     Indication: POLYURIA
     Dosage: 20MG EVERY 12 HOURS
     Route: 042
     Dates: start: 20180925, end: 20180927
  2. LEVOFLOXACIN/LEVOFLOXACIN MESYLATE [Suspect]
     Active Substance: LEVOFLOXACIN
     Indication: RESPIRATORY TRACT INFECTION
     Dosage: 500 MG EVERY 24 HOURS
     Route: 042
     Dates: start: 20180923, end: 20180927
  3. PROPOFOL. [Suspect]
     Active Substance: PROPOFOL
     Indication: SEDATION
     Dosage: CONTINUOUS PERFUSION
     Route: 041
     Dates: start: 20180923, end: 20180925
  4. DEXKETOPROFEN [Suspect]
     Active Substance: DEXKETOPROFEN
     Indication: ANALGESIC THERAPY
     Dosage: EVERY 8 HOURS,ALSO RECEIVED 25 MG (2-OCT-18 -15-OCT-18)
     Route: 042
     Dates: start: 20180928, end: 20181002
  5. LINEZOLID. [Suspect]
     Active Substance: LINEZOLID
     Indication: RESPIRATORY TRACT INFECTION
     Dosage: 600 MG EVERY 12 HOURS
     Route: 042
     Dates: start: 20180923, end: 20180926
  6. DEXKETOPROFEN [Suspect]
     Active Substance: DEXKETOPROFEN
     Indication: ANALGESIC THERAPY
     Dosage: EVERY 8 HOURS,ALSO RECEIVED 25 MG (2-OCT-18 -15-OCT-18)
     Route: 042
     Dates: start: 20181002, end: 20181015

REACTIONS (1)
  - Hyperamylasaemia [Recovered/Resolved]

NARRATIVE: CASE EVENT DATE: 20181001
